FAERS Safety Report 8056712-4 (Version None)
Quarter: 2012Q1

REPORT INFORMATION
  Report Type: 
  Country: None (occurrence: None)
  Receive Date: 20120119
  Receipt Date: 20120113
  Transmission Date: 20120608
  Serious: Yes (Hospitalization, Other)
  Sender: FDA-Public Use
  Company Number: DE-PFIZER INC-2012001956

PATIENT
  Age: 19 Year
  Sex: Male
  Weight: 70 kg

DRUGS (3)
  1. ETHANOL [Suspect]
     Dosage: UNK
     Dates: start: 20111226, end: 20111226
  2. PANTOPRAZOLE [Suspect]
     Dosage: 240 MG, POSSIBLY AT ONCE
     Dates: start: 20111226, end: 20111226
  3. TETRAZEPAM [Suspect]
     Dosage: 1000 MG, UNK
     Dates: start: 20111226, end: 20111226

REACTIONS (4)
  - TOXICITY TO VARIOUS AGENTS [None]
  - SOMNOLENCE [None]
  - INTENTIONAL OVERDOSE [None]
  - SUICIDE ATTEMPT [None]
